FAERS Safety Report 4679165-2 (Version None)
Quarter: 2005Q2

REPORT INFORMATION
  Report Type: 
  Country: None (occurrence: None)
  Receive Date: 20050526
  Receipt Date: 20050311
  Transmission Date: 20051028
  Serious: Yes (Other)
  Sender: FDA-Public Use
  Company Number: WAES 0503USA01820

PATIENT
  Age: 71 Year
  Sex: Female

DRUGS (7)
  1. VYTORIN [Suspect]
     Indication: BLOOD CHOLESTEROL INCREASED
     Dosage: 10-80 MG/DAILY/PO
     Route: 048
     Dates: end: 20050310
  2. ACTONEL [Concomitant]
  3. ALTACE [Concomitant]
  4. BUMEX [Concomitant]
  5. CARDIZEM CD [Concomitant]
  6. PLAVIX [Concomitant]
  7. THEO-DUR [Concomitant]

REACTIONS (1)
  - BLOOD CREATINE PHOSPHOKINASE INCREASED [None]
